FAERS Safety Report 13996162 (Version 2)
Quarter: 2017Q3

REPORT INFORMATION
  Report Type: Spontaneous
  Country: US (occurrence: US)
  Receive Date: 20170921
  Receipt Date: 20170925
  Transmission Date: 20171128
  Serious: Yes (Hospitalization)
  Sender: FDA-Public Use
  Company Number: US-STRIDES ARCOLAB LIMITED-2017SP012803

PATIENT

DRUGS (1)
  1. HYDRALAZINE HCL [Suspect]
     Active Substance: HYDRALAZINE HYDROCHLORIDE
     Indication: PRODUCT USED FOR UNKNOWN INDICATION
     Dosage: UNK
     Route: 065

REACTIONS (9)
  - Myalgia [Unknown]
  - Cardiac tamponade [Unknown]
  - Arthralgia [Unknown]
  - Pyrexia [Unknown]
  - Atrial flutter [Recovered/Resolved]
  - Joint swelling [Unknown]
  - Systemic lupus erythematosus [Unknown]
  - Dyspnoea [Unknown]
  - Chills [Unknown]
